FAERS Safety Report 9627931 (Version 3)
Quarter: 2013Q4

REPORT INFORMATION
  Report Type: Report from Study
  Country: GB (occurrence: GB)
  Receive Date: 20131016
  Receipt Date: 20131023
  Transmission Date: 20140711
  Serious: Yes (Hospitalization, Other)
  Sender: FDA-Public Use
  Company Number: GB-B.I. PHARMACEUTICALS,INC./RIDGEFIELD-2013-BI-24160BI

PATIENT
  Age: 64 Year
  Sex: Male

DRUGS (7)
  1. BIBW 2992 [Suspect]
     Indication: SQUAMOUS CELL CARCINOMA OF LUNG
     Dosage: 20 MG
     Route: 048
     Dates: start: 20130804, end: 20130806
  2. PRETREATMENT [Suspect]
     Indication: SQUAMOUS CELL CARCINOMA OF LUNG
  3. MEGACE [Concomitant]
     Indication: APPETITE DISORDER
     Dosage: 160 MG
     Route: 048
     Dates: start: 201303
  4. E45 CREAM [Concomitant]
     Indication: DRY SKIN
     Route: 061
     Dates: start: 20130707
  5. HYDROCORTISONE [Concomitant]
     Indication: CHAPPED LIPS
     Dosage: TOTAL DAILY DOSE: 1%
     Route: 061
     Dates: start: 20130716
  6. DOXLCYCLINE [Concomitant]
     Indication: CHEILITIS
     Dosage: 100 MG
     Route: 048
     Dates: start: 20130806, end: 20130811
  7. DOMPERIDONE [Concomitant]
     Indication: PROPHYLAXIS OF NAUSEA AND VOMITING
     Dosage: 10 MG
     Route: 048
     Dates: start: 20130723

REACTIONS (4)
  - Stomatitis [Not Recovered/Not Resolved]
  - Vomiting [Recovered/Resolved]
  - Diarrhoea [Recovered/Resolved]
  - Nausea [Recovered/Resolved]
